FAERS Safety Report 7036885-2 (Version None)
Quarter: 2010Q4

REPORT INFORMATION
  Report Type: 
  Country: None (occurrence: None)
  Receive Date: 20101011
  Receipt Date: 20100929
  Transmission Date: 20110411
  Serious: Yes (Other)
  Sender: FDA-Public Use
  Company Number: CA-JNJFOC-20101000667

PATIENT
  Sex: Male
  Weight: 144 kg

DRUGS (2)
  1. REMICADE [Suspect]
     Indication: CROHN'S DISEASE
     Route: 042
  2. SOLU-CORTEF [Concomitant]
     Route: 042

REACTIONS (6)
  - BLOOD PRESSURE FLUCTUATION [None]
  - DYSPNOEA [None]
  - FLUSHING [None]
  - HEART RATE ABNORMAL [None]
  - HYPERHIDROSIS [None]
  - INFUSION RELATED REACTION [None]
